FAERS Safety Report 7127185-0 (Version None)
Quarter: 2010Q4

REPORT INFORMATION
  Report Type: 
  Country: None (occurrence: None)
  Receive Date: 20101129
  Receipt Date: 20100305
  Transmission Date: 20110411
  Serious: Yes (Hospitalization, Other)
  Sender: FDA-Public Use
  Company Number: US-PFIZER INC-2010010562

PATIENT
  Sex: Male

DRUGS (6)
  1. VIAGRA [Suspect]
  2. HYDROCHLOROTHIAZIDE [Concomitant]
     Dosage: 12.5 MG, 1X/DAY
  3. VICODIN [Concomitant]
     Indication: PAIN
     Dosage: UNK
     Route: 048
  4. ACETYLSALICYLIC ACID [Concomitant]
     Dosage: 81 MG, 1X/DAY
  5. LOVASTATIN [Concomitant]
     Dosage: 40 MG, 1X/DAY
  6. BENAZEPRIL [Concomitant]
     Dosage: 20 MG, 1X/DAY

REACTIONS (1)
  - PRIAPISM [None]
